FAERS Safety Report 12652008 (Version 4)
Quarter: 2017Q2

REPORT INFORMATION
  Report Type: Spontaneous
  Country: US (occurrence: US)
  Receive Date: 20160815
  Receipt Date: 20170601
  Transmission Date: 20170830
  Serious: No
  Sender: FDA-Public Use
  Company Number: US-ACTELION-A-NJ2016-140536

PATIENT
  Age: 48 Year
  Sex: Female
  Weight: 87.98 kg

DRUGS (4)
  1. ADCIRCA [Concomitant]
     Active Substance: TADALAFIL
  2. OPSUMIT [Suspect]
     Active Substance: MACITENTAN
     Indication: PULMONARY ARTERIAL HYPERTENSION
     Dosage: 10 MG, QD
     Route: 048
     Dates: start: 20141106
  3. UPTRAVI [Suspect]
     Active Substance: SELEXIPAG
     Indication: PULMONARY ARTERIAL HYPERTENSION
     Dosage: 1600 MCG, UNK
     Route: 048
     Dates: start: 20160518
  4. AMLODIPINE [Concomitant]
     Active Substance: AMLODIPINE BESYLATE

REACTIONS (8)
  - Viral upper respiratory tract infection [Unknown]
  - Colitis ulcerative [Unknown]
  - Cough [Unknown]
  - Oropharyngeal pain [Unknown]
  - Sinusitis [Unknown]
  - Crohn^s disease [Unknown]
  - Pharyngitis streptococcal [Unknown]
  - Restless legs syndrome [Unknown]
